FAERS Safety Report 16658684 (Version 2)
Quarter: 2019Q3

REPORT INFORMATION
  Report Type: Spontaneous
  Country: US (occurrence: US)
  Receive Date: 20190801
  Receipt Date: 20190905
  Transmission Date: 20191004
  Serious: Yes (Other)
  Sender: FDA-Public Use
  Company Number: US-PFM-2019-09085

PATIENT
  Age: 37 Year
  Sex: Female

DRUGS (6)
  1. PROPRANOLOL HYDROCHLORIDE. [Suspect]
     Active Substance: PROPRANOLOL HYDROCHLORIDE
     Indication: TACHYCARDIA
     Dosage: 60 MG, TID (3/DAY)
  2. ADENOSINE. [Concomitant]
     Active Substance: ADENOSINE
     Indication: SUPRAVENTRICULAR TACHYCARDIA
     Dosage: 6 MG, UNK
  3. DILTIAZEM. [Concomitant]
     Active Substance: DILTIAZEM
     Indication: SUPRAVENTRICULAR TACHYCARDIA
     Dosage: BOLUS
  4. DILTIAZEM. [Concomitant]
     Active Substance: DILTIAZEM
     Dosage: ON A DRIP
  5. PROPRANOLOL HYDROCHLORIDE. [Suspect]
     Active Substance: PROPRANOLOL HYDROCHLORIDE
     Indication: OFF LABEL USE
  6. ADENOSINE. [Concomitant]
     Active Substance: ADENOSINE
     Dosage: 12 MG, UNK

REACTIONS (12)
  - Inappropriate schedule of product administration [Unknown]
  - Thyrotoxic cardiomyopathy [Recovered/Resolved]
  - Dyspnoea [Recovered/Resolved]
  - Hypotension [Recovered/Resolved]
  - Unresponsive to stimuli [Recovered/Resolved]
  - Product use in unapproved indication [Unknown]
  - Product use issue [Unknown]
  - Off label use [Unknown]
  - Thyrotoxic crisis [Recovered/Resolved]
  - Cardiogenic shock [Recovered/Resolved]
  - Basedow^s disease [Recovered/Resolved]
  - Agitation [Recovered/Resolved]
